FAERS Safety Report 8649041 (Version 3)
Quarter: 2012Q4

REPORT INFORMATION
  Report Type: 
  Country: NL (occurrence: NL)
  Receive Date: 20120704
  Receipt Date: 20121022
  Transmission Date: 20130627
  Serious: Yes (Other)
  Sender: FDA-Public Use
  Company Number: PHHY2012NL056833

PATIENT
  Age: 61 Year
  Sex: Male
  Weight: 93 kg

DRUGS (3)
  1. ZOMETA [Suspect]
     Indication: METASTASES TO BONE
     Dosage: 4 mg/100ml 1x per 28 days
     Route: 042
     Dates: start: 20120504
  2. ZOMETA [Suspect]
     Dosage: 4 mg/100ml 1x per 28 days
     Route: 042
     Dates: start: 20120601, end: 20120619
  3. SUNITINIB MALATE [Concomitant]
     Indication: RENAL CELL CARCINOMA
     Dosage: 50 mg, daily
     Dates: start: 20120522

REACTIONS (2)
  - Osteomyelitis [Recovering/Resolving]
  - Pain in jaw [Recovered/Resolved]
